FAERS Safety Report 9058336 (Version 1)
Quarter: 2013Q1

REPORT INFORMATION
  Report Type: Spontaneous
  Country: US (occurrence: US)
  Receive Date: 20130211
  Receipt Date: 20130211
  Transmission Date: 20140127
  Serious: No
  Sender: FDA-Public Use
  Company Number: US-JNJFOC-20121213830

PATIENT
  Sex: Female
  Weight: 90.72 kg

DRUGS (4)
  1. DURAGESIC [Suspect]
     Indication: PAIN
     Route: 062
     Dates: start: 2007
  2. DURAGESIC [Suspect]
     Indication: PAIN
     Route: 062
  3. THEOPHYLLINE [Concomitant]
     Indication: ASTHMA
     Route: 065
  4. DULERA [Concomitant]
     Indication: ASTHMA
     Route: 055

REACTIONS (7)
  - Pain [Recovered/Resolved]
  - Product quality issue [Not Recovered/Not Resolved]
  - Injury [Recovered/Resolved]
  - Product quality issue [Unknown]
  - Hyperhidrosis [Not Recovered/Not Resolved]
  - Wrong technique in drug usage process [Unknown]
  - Wrong technique in drug usage process [Unknown]
